FAERS Safety Report 13994229 (Version 1)
Quarter: 2017Q3

REPORT INFORMATION
  Report Type: Spontaneous
  Country: US (occurrence: US)
  Receive Date: 20170920
  Receipt Date: 20170920
  Transmission Date: 20171128
  Serious: Yes (Disabling)
  Sender: FDA-Public Use
  Company Number: None

PATIENT
  Age: 45 Year
  Sex: Female
  Weight: 63 kg

DRUGS (2)
  1. CORTICOSTEROIDS [Suspect]
     Active Substance: CORTICOSTEROID NOS
     Indication: NECK PAIN
     Route: 008
  2. CORTICOSTEROIDS [Suspect]
     Active Substance: CORTICOSTEROID NOS
     Indication: INTERVERTEBRAL DISC PROTRUSION
     Route: 008

REACTIONS (4)
  - Pain in extremity [None]
  - Joint range of motion decreased [None]
  - Cyst [None]
  - Asthenia [None]

NARRATIVE: CASE EVENT DATE: 20170330
